FAERS Safety Report 7345741-1 (Version None)
Quarter: 2011Q1

REPORT INFORMATION
  Report Type: 
  Country: None (occurrence: None)
  Receive Date: 20110308
  Receipt Date: 20110308
  Transmission Date: 20110831
  Serious: Yes (Other)
  Sender: FDA-Public Use
  Company Number: None

PATIENT
  Age: 16 Year
  Sex: Female
  Weight: 60 kg

DRUGS (1)
  1. CONCERTA [Suspect]
     Indication: PAIN IN EXTREMITY
     Dosage: 54MG QAM PO
     Route: 048
     Dates: start: 20110119, end: 20110129

REACTIONS (1)
  - PAIN IN EXTREMITY [None]
